FAERS Safety Report 7757093-3 (Version None)
Quarter: 2011Q3

REPORT INFORMATION
  Report Type: 
  Country: None (occurrence: None)
  Receive Date: 20110916
  Receipt Date: 20110907
  Transmission Date: 20111222
  Serious: Yes (Hospitalization)
  Sender: FDA-Public Use
  Company Number: US-BRISTOL-MYERS SQUIBB COMPANY-16032559

PATIENT
  Age: 64 Year
  Sex: Female

DRUGS (16)
  1. HEPARIN SODIUM [Suspect]
  2. VENTOLIN HFA [Concomitant]
  3. LISINOPRIL [Suspect]
  4. TOPICAL STEROID CREAM [Concomitant]
  5. DIAZEPAM [Concomitant]
  6. COUMADIN [Suspect]
     Dosage: 2.5MG 7SEP11 5MG 2DAYS 7.5MG QD ALL ORAL
     Route: 048
  7. WARFARIN SODIUM [Suspect]
  8. SENNA [Concomitant]
  9. ADVAIR DISKUS 100/50 [Concomitant]
  10. SIMVASTATIN [Concomitant]
  11. ENBREL [Concomitant]
  12. LIDEX [Concomitant]
     Dosage: LIDEX 0.05% UNITS NOS
  13. FLUOCINONIDE [Concomitant]
  14. SYNTHROID [Concomitant]
  15. OXYCONTIN [Concomitant]
  16. POTASSIUM [Concomitant]

REACTIONS (4)
  - GLAUCOMA [None]
  - BLOOD PRESSURE INCREASED [None]
  - CELLULITIS [None]
  - INTERNATIONAL NORMALISED RATIO FLUCTUATION [None]
